FAERS Safety Report 8617679-0 (Version None)
Quarter: 2012Q3

REPORT INFORMATION
  Report Type: 
  Country: None (occurrence: None)
  Receive Date: 20120824
  Receipt Date: 20111229
  Transmission Date: 20120928
  Serious: No
  Sender: FDA-Public Use
  Company Number: US-ASTRAZENECA-2011SE79069

PATIENT
  Age: 74 Year
  Sex: Female
  Weight: 98.4 kg

DRUGS (4)
  1. CALCIUM [Concomitant]
  2. LOVAZA [Concomitant]
  3. ATENOLOL [Suspect]
     Route: 048
  4. SYMBICORT [Suspect]
     Indication: ASTHMA
     Dosage: 2 PUFFS, TWO TIMES DAILY.
     Route: 055
     Dates: start: 20111101

REACTIONS (7)
  - SINUSITIS [None]
  - FUNGAL INFECTION [None]
  - DRUG INEFFECTIVE [None]
  - ORAL CANDIDIASIS [None]
  - BRONCHITIS [None]
  - OROPHARYNGEAL PAIN [None]
  - INAPPROPRIATE SCHEDULE OF DRUG ADMINISTRATION [None]
